FAERS Safety Report 15386896 (Version 3)
Quarter: 2019Q2

REPORT INFORMATION
  Report Type: Spontaneous
  Country: US (occurrence: US)
  Receive Date: 20180914
  Receipt Date: 20190605
  Transmission Date: 20190711
  Serious: No
  Sender: FDA-Public Use
  Company Number: US-PFIZER INC-2018371607

PATIENT
  Age: 62 Year
  Sex: Female

DRUGS (1)
  1. IBRANCE [Suspect]
     Active Substance: PALBOCICLIB
     Indication: BREAST CANCER FEMALE
     Dosage: 75 MG, 1X/DAY DAILY
     Route: 048
     Dates: start: 20180712

REACTIONS (3)
  - Tongue disorder [Unknown]
  - Mood swings [Unknown]
  - Stomatitis [Unknown]

NARRATIVE: CASE EVENT DATE: 20180910
